FAERS Safety Report 6000681-5 (Version None)
Quarter: 2008Q4

REPORT INFORMATION
  Report Type: 
  Country: None (occurrence: None)
  Receive Date: 20081215
  Receipt Date: 20080815
  Transmission Date: 20090506
  Serious: No
  Sender: FDA-Public Use
  Company Number: US-AMGEN-KDL302285

PATIENT
  Sex: Male
  Weight: 90.8 kg

DRUGS (4)
  1. ENBREL [Suspect]
     Indication: RHEUMATOID ARTHRITIS
  2. METHOTREXATE [Concomitant]
  3. PREDNISONE TAB [Concomitant]
     Route: 048
  4. UNSPECIFIED PAIN MEDICATION [Concomitant]

REACTIONS (1)
  - DRUG INEFFECTIVE [None]
